FAERS Safety Report 8414393-1 (Version None)
Quarter: 2012Q2

REPORT INFORMATION
  Report Type: 
  Country: None (occurrence: None)
  Receive Date: 20120605
  Receipt Date: 20120523
  Transmission Date: 20120825
  Serious: Yes (Hospitalization)
  Sender: FDA-Public Use
  Company Number: US-MYLANLABS-2012S1010859

PATIENT
  Age: 47 Year
  Sex: Female

DRUGS (3)
  1. CINACALCET HYDROCHLORIDE [Concomitant]
     Dosage: 30MG DAILY
     Route: 065
  2. VALPROIC ACID [Suspect]
     Dosage: 2500MG TOTAL DAILY
     Route: 065
  3. CALCIUM ACETATE [Concomitant]
     Route: 065

REACTIONS (3)
  - TOXICITY TO VARIOUS AGENTS [None]
  - ENCEPHALOPATHY [None]
  - ASTHENIA [None]
